FAERS Safety Report 4422794-1 (Version None)
Quarter: 2004Q3

REPORT INFORMATION
  Report Type: 
  Country: None (occurrence: None)
  Receive Date: 20040719
  Receipt Date: 20040719
  Transmission Date: 20050211
  Serious: Yes (Death)
  Sender: FDA-Public Use
  Company Number: M03-INT-100

PATIENT
  Sex: Female

DRUGS (2)
  1. INTEGRILIN [Suspect]
     Indication: STENT PLACEMENT
  2. PLAVIX [Concomitant]

REACTIONS (1)
  - HAEMORRHAGE [None]
